FAERS Safety Report 9042029 (Version 1)
Quarter: 2013Q1

REPORT INFORMATION
  Report Type: Report from Study
  Country: US (occurrence: US)
  Receive Date: 20130129
  Receipt Date: 20130129
  Transmission Date: 20140127
  Serious: No
  Sender: FDA-Public Use
  Company Number: US-ABBOTT-12P-163-0906413-00

PATIENT
  Age: 63 Year
  Sex: Female

DRUGS (19)
  1. HUMIRA 40 MG/0.8 ML PEN [Suspect]
     Indication: RHEUMATOID ARTHRITIS
     Dates: end: 201112
  2. ACTONEL [Concomitant]
     Indication: ILL-DEFINED DISORDER
  3. SPIRIVA [Concomitant]
     Indication: OXYGEN SATURATION DECREASED
     Dosage: DAILY AT NIGHT HAND INHALER
  4. CPAP [Concomitant]
     Indication: OXYGEN SATURATION DECREASED
     Dosage: AT NIGHT
  5. TRAMADOL [Concomitant]
     Indication: ARTHRALGIA
     Dosage: 2 PILLS 3 TIMES A DAY
  6. LYRICA [Concomitant]
     Indication: PAIN
     Dosage: TID
  7. MELOXICAM [Concomitant]
     Indication: MUSCULOSKELETAL STIFFNESS
     Dosage: 7.5 DAILY
  8. METHOTREXATE [Concomitant]
     Indication: RHEUMATOID ARTHRITIS
     Dosage: 2.5 MG 7 PILLS WEEKLY
  9. LISINOPRIL/HCTZ [Concomitant]
     Indication: BLOOD PRESSURE
     Dosage: 20/12.5 BID
  10. BABY ASPIRIN [Concomitant]
     Indication: PROPHYLAXIS
     Dosage: DAILY
  11. VERAPAMIL [Concomitant]
     Indication: PRODUCT USED FOR UNKNOWN INDICATION
  12. GEMFIBROZIL [Concomitant]
     Indication: BLOOD CHOLESTEROL
  13. VITAMIN D [Concomitant]
     Indication: PRODUCT USED FOR UNKNOWN INDICATION
     Dosage: 50000 TWICE A WEEK
  14. FOLIC ACID [Concomitant]
     Indication: VITAMIN SUPPLEMENTATION
  15. VITAMIN B12 [Concomitant]
     Indication: PRODUCT USED FOR UNKNOWN INDICATION
     Dosage: 1000 BID
  16. MULTIPLE VITAMIN [Concomitant]
     Indication: VITAMIN SUPPLEMENTATION
     Dosage: DAILY
  17. FLAXSEED OIL [Concomitant]
     Indication: PRODUCT USED FOR UNKNOWN INDICATION
     Dosage: DAILY
  18. WOMEN^S HIGH POTENCY MULTIVITAMIN [Concomitant]
     Indication: PRODUCT USED FOR UNKNOWN INDICATION
     Dosage: DAILY
  19. CALCIUM 600 PLUS D [Concomitant]
     Indication: MINERAL SUPPLEMENTATION
     Dosage: DAILY

REACTIONS (6)
  - Hypersomnia [Not Recovered/Not Resolved]
  - Fatigue [Not Recovered/Not Resolved]
  - Headache [Not Recovered/Not Resolved]
  - Headache [Not Recovered/Not Resolved]
  - Feeling abnormal [Not Recovered/Not Resolved]
  - Fatigue [Not Recovered/Not Resolved]
